FAERS Safety Report 9539346 (Version 1)
Quarter: 2013Q2

REPORT INFORMATION
  Report Type: Spontaneous
  Country: US (occurrence: None)
  Receive Date: 20130507
  Receipt Date: 20130507
  Transmission Date: 20140414
  Serious: No
  Sender: FDA-Public Use
  Company Number: PHEH2012US025193

PATIENT
  Sex: Male

DRUGS (6)
  1. AFINITOR [Suspect]
     Indication: NEUROENDOCRINE TUMOUR
     Route: 048
  2. AFINITOR [Suspect]
     Indication: METASTASIS
     Route: 048
  3. OMEPRAZOLE (OMEPRAZOLE) [Concomitant]
  4. MULTI-VIT (VITAMINS NOS) [Concomitant]
  5. OMEGA 3 (FISH OIL) [Concomitant]
  6. CO Q 10 (UBIDECARENONE) [Concomitant]

REACTIONS (3)
  - Stomatitis [None]
  - Fatigue [None]
  - Oedema peripheral [None]
